FAERS Safety Report 4717751-1 (Version None)
Quarter: 2005Q3

REPORT INFORMATION
  Report Type: 
  Country: None (occurrence: None)
  Receive Date: 20050715
  Receipt Date: 20040519
  Transmission Date: 20060218
  Serious: Yes (Other)
  Sender: FDA-Public Use
  Company Number: M04-INT-080

PATIENT

DRUGS (1)
  1. INTEGRILIN [Suspect]

REACTIONS (1)
  - THROMBOCYTOPENIA [None]
